FAERS Safety Report 7034884-8 (Version None)
Quarter: 2010Q4

REPORT INFORMATION
  Report Type: 
  Country: None (occurrence: None)
  Receive Date: 20101008
  Receipt Date: 20100930
  Transmission Date: 20110411
  Serious: No
  Sender: FDA-Public Use
  Company Number: US-PFIZER INC-2010114212

PATIENT
  Age: 77 Year
  Sex: Female

DRUGS (17)
  1. COLESTID [Suspect]
     Indication: DIARRHOEA
     Dosage: 1 G, ONCE OR TWICE DAILY
     Dates: start: 20100825
  2. PROPOXYPHENE NAPSYLATE W/ ACETAMINOPHEN [Suspect]
     Indication: PAIN
     Dosage: 100 MG/650 1 TO 2 TABLETS EVERY 6 HOURS AS NEEDED
     Route: 048
  3. ACETAMINOPHEN AND HYDROCODONE BITARTRATE [Suspect]
     Indication: PAIN
     Dosage: 5 MG/500 MG, 1 TO 2 TABLETS EVERY 4 TO 6 HOURS AS NEEDED
     Route: 048
  4. REMERON [Concomitant]
     Dosage: 15 MG, UNK
  5. ALENDRONATE SODIUM [Concomitant]
     Dosage: 70 MG, EVERY WEEK
  6. ALPRAZOLAM [Concomitant]
     Dosage: 0.25 MG, EVERY 4 TO 6 HOURS AS NEEDED
     Route: 048
  7. AMLODIPINE BESILATE [Concomitant]
     Dosage: UNK, DAILY
     Route: 048
  8. DICYCLOMINE [Concomitant]
     Dosage: 10 MG, 3X/DAY
     Route: 048
  9. DIOVAN [Concomitant]
     Dosage: UNK, DAILY
     Route: 048
  10. IBUPROFEN [Concomitant]
     Dosage: 800 MG, 3X/DAY
     Route: 048
  11. LEVOTHYROXINE SODIUM [Concomitant]
     Dosage: UNK, DAILY
     Route: 048
  12. OMEPRAZOLE [Concomitant]
     Dosage: 20 MG, EVERY MORNING
     Route: 048
  13. ATENOLOL [Concomitant]
     Dosage: UNK, DAILY
     Route: 048
  14. LIPITOR [Concomitant]
     Dosage: UNK, DAILY
     Route: 048
  15. PROCHLORPERAZINE [Concomitant]
     Dosage: 10 MG, EVERY 4 TO 6 HOURS AS NEEDED
     Route: 048
  16. PROCHLORPERAZINE [Concomitant]
     Dosage: FREQUENCY: EVERY 8 TO 12 HOURS AS NEEDED,
     Route: 054
  17. PROCHLORPERAZINE [Concomitant]
     Dosage: 25 MG, EVERY 8 TO 12 HOURS AS NEEDED
     Route: 054

REACTIONS (2)
  - NAUSEA [None]
  - VOMITING [None]
